FAERS Safety Report 6775382-6 (Version None)
Quarter: 2010Q2

REPORT INFORMATION
  Report Type: 
  Country: None (occurrence: None)
  Receive Date: 20100617
  Receipt Date: 20100608
  Transmission Date: 20101027
  Serious: Yes (Death)
  Sender: FDA-Public Use
  Company Number: AR-PFIZER INC-2010071728

PATIENT
  Age: 70 Year
  Sex: Male

DRUGS (4)
  1. CABERGOLINE [Suspect]
     Indication: PROLACTINOMA
     Dosage: 1 MG, WEEKLY
  2. CABERGOLINE [Suspect]
     Dosage: 3.5 MG, WEEKLY
  3. CABERGOLINE [Suspect]
     Dosage: 4.5 MG, WEEKLY
  4. CABERGOLINE [Suspect]
     Dosage: 5 MG, WEEKLY

REACTIONS (2)
  - DRUG INEFFECTIVE [None]
  - NEOPLASM PROGRESSION [None]
